FAERS Safety Report 24707308 (Version 1)
Quarter: 2024Q4

REPORT INFORMATION
  Report Type: Spontaneous
  Country: US (occurrence: US)
  Receive Date: 20241206
  Receipt Date: 20241206
  Transmission Date: 20250115
  Serious: No
  Sender: NOVO NORDISK
  Company Number: US-NOVOPROD-1214165

PATIENT
  Age: 77 Year
  Sex: Male
  Weight: 92.971 kg

DRUGS (1)
  1. NOVOLIN R [Suspect]
     Active Substance: INSULIN HUMAN
     Indication: Product used for unknown indication
     Dosage: 3.5 MG, QD
     Route: 058
     Dates: start: 20240407, end: 20240422

REACTIONS (2)
  - Blood pressure increased [Unknown]
  - Drug delivery system issue [Recovered/Resolved]

NARRATIVE: CASE EVENT DATE: 20240407
